FAERS Safety Report 9546606 (Version 1)
Quarter: 2013Q3

REPORT INFORMATION
  Report Type: Report from Study
  Country: BR (occurrence: BR)
  Receive Date: 20130924
  Receipt Date: 20130924
  Transmission Date: 20140515
  Serious: Yes (Other)
  Sender: FDA-Public Use
  Company Number: BR-ROCHE-1278751

PATIENT
  Sex: Female
  Weight: 58 kg

DRUGS (6)
  1. XOLAIR [Suspect]
     Indication: ASTHMA
     Dosage: 2 AMPOULES FOR 15 DAYS
     Route: 065
  2. BUDESONIDE [Concomitant]
  3. BETASERC [Concomitant]
  4. AEROLIN [Concomitant]
  5. FORASEQ [Concomitant]
  6. ALINIA [Concomitant]

REACTIONS (13)
  - Labyrinthitis [Recovering/Resolving]
  - Depression [Recovering/Resolving]
  - Low density lipoprotein increased [Recovering/Resolving]
  - Blood triglycerides increased [Recovering/Resolving]
  - Malaise [Recovering/Resolving]
  - Wheezing [Recovering/Resolving]
  - Fall [Recovering/Resolving]
  - Joint injury [Recovering/Resolving]
  - Memory impairment [Recovering/Resolving]
  - Insomnia [Recovering/Resolving]
  - Weight decreased [Recovering/Resolving]
  - Dizziness [Recovering/Resolving]
  - Fatigue [Recovering/Resolving]
